FAERS Safety Report 4641389-8 (Version None)
Quarter: 2005Q2

REPORT INFORMATION
  Report Type: 
  Country: None (occurrence: None)
  Receive Date: 20050421
  Receipt Date: 20050412
  Transmission Date: 20051028
  Serious: Yes (Other)
  Sender: FDA-Public Use
  Company Number: US-GLAXOSMITHKLINE-A0553693A

PATIENT
  Age: 75 Year
  Sex: Female

DRUGS (1)
  1. SOMINEX REGULAR STRENGTH CAPLETS [Suspect]
     Indication: INSOMNIA
     Route: 048
     Dates: start: 19970101

REACTIONS (2)
  - DEPENDENCE [None]
  - DRUG DEPENDENCE [None]
